FAERS Safety Report 24246229 (Version 1)
Quarter: 2024Q3

REPORT INFORMATION
  Report Type: Spontaneous
  Country: US (occurrence: None)
  Receive Date: 20240825
  Receipt Date: 20240825
  Transmission Date: 20241017
  Serious: No
  Sender: ASTRAZENECA
  Company Number: 2024A191070

PATIENT
  Age: 27172 Day
  Sex: Female

DRUGS (10)
  1. FARXIGA [Suspect]
     Active Substance: DAPAGLIFLOZIN PROPANEDIOL
     Indication: Cardiac failure congestive
     Route: 048
     Dates: start: 20240415, end: 20240818
  2. COZARR [Concomitant]
  3. METOPROLOL [Concomitant]
     Active Substance: METOPROLOL
  4. DIGOXIN [Concomitant]
     Active Substance: DIGOXIN
  5. ELIQUIS [Concomitant]
     Active Substance: APIXABAN
  6. PRILOSEC [Concomitant]
     Active Substance: OMEPRAZOLE MAGNESIUM
  7. POTASSIUM [Concomitant]
     Active Substance: POTASSIUM
  8. MAGNESIUM [Concomitant]
     Active Substance: MAGNESIUM
  9. CALCIUM [Concomitant]
     Active Substance: CALCIUM
  10. METHYLCOBALAMIN [Concomitant]
     Active Substance: METHYLCOBALAMIN

REACTIONS (4)
  - Pericardial effusion [Recovering/Resolving]
  - Weight decreased [Unknown]
  - Dyspnoea [Unknown]
  - Fatigue [Unknown]

NARRATIVE: CASE EVENT DATE: 20240818
